FAERS Safety Report 8433241-7 (Version None)
Quarter: 2012Q2

REPORT INFORMATION
  Report Type: 
  Country: None (occurrence: None)
  Receive Date: 20120323
  Receipt Date: 20110728
  Transmission Date: 20120825
  Serious: Yes (Hospitalization)
  Sender: FDA-Public Use
  Company Number: 163-21880-11070646

PATIENT
  Age: 62 Year
  Sex: Male

DRUGS (10)
  1. ZANTAC [Concomitant]
  2. PHENERGAN HCL [Concomitant]
  3. ALKERAN [Concomitant]
  4. HUMALOG [Concomitant]
  5. REGLAN [Concomitant]
  6. ATIVAN [Concomitant]
  7. METHADONE HCL (METHADONE HYDROCHLORIDE) [Concomitant]
  8. ZANTAC [Concomitant]
  9. REVLIMID [Suspect]
     Indication: MULTIPLE MYELOMA
     Dosage: 5 MG, 1 IN 1 D, PO
     Route: 048
     Dates: start: 20110623
  10. HYDROCODONE-ACETAMINOPHEN (REMEDEINE) [Concomitant]

REACTIONS (1)
  - HIP FRACTURE [None]
